FAERS Safety Report 6999392-9 (Version None)
Quarter: 2010Q3

REPORT INFORMATION
  Report Type: 
  Country: None (occurrence: None)
  Receive Date: 20100920
  Receipt Date: 20100716
  Transmission Date: 20110219
  Serious: No
  Sender: FDA-Public Use
  Company Number: US-ASTRAZENECA-2010SE33416

PATIENT
  Age: 33 Year
  Sex: Female
  Weight: 79.4 kg

DRUGS (1)
  1. SEROQUEL XR [Suspect]
     Route: 048
     Dates: start: 20100601, end: 20100715

REACTIONS (4)
  - DEPRESSION [None]
  - HEADACHE [None]
  - HYPERSOMNIA [None]
  - MOOD SWINGS [None]
